FAERS Safety Report 7833107-7 (Version None)
Quarter: 2011Q4

REPORT INFORMATION
  Report Type: 
  Country: None (occurrence: None)
  Receive Date: 20111024
  Receipt Date: 20111017
  Transmission Date: 20120403
  Serious: Yes (Hospitalization, Other)
  Sender: FDA-Public Use
  Company Number: US-AMGEN-USASP2011049158

PATIENT
  Age: 76 Year
  Sex: Male
  Weight: 116.1 kg

DRUGS (19)
  1. OMEGA 3                            /01334101/ [Concomitant]
     Dosage: 3 DF, QD
     Route: 048
  2. WARFARIN SODIUM [Concomitant]
     Dosage: 5 MG, BID
     Route: 048
  3. LUMIGAN [Concomitant]
     Dosage: 1 GTT, QD
     Route: 031
  4. GLIMEPIRIDE [Concomitant]
     Dosage: 2 DF, BID
     Route: 048
  5. VITAMIN D [Concomitant]
     Dosage: 1 DF, QD
     Route: 048
  6. PRAVASTATIN                        /00880402/ [Concomitant]
     Dosage: 40 MG, QHS
     Route: 048
  7. MAGNESIUM OXIDE [Concomitant]
     Dosage: 400 MG, QD
     Route: 048
  8. GLUCOSAMINE CHONDROITIN [Concomitant]
     Dosage: 2 DF, UNK
     Route: 048
  9. VITAMIN C                          /00008001/ [Concomitant]
     Dosage: 1000 MG, QD
     Route: 048
  10. NPLATE [Suspect]
     Indication: IDIOPATHIC THROMBOCYTOPENIC PURPURA
     Dosage: 232 UNK, UNK
     Route: 058
     Dates: start: 20110111, end: 20110518
  11. ZINC [Concomitant]
     Dosage: 15 MG, QD
     Route: 048
  12. PRILOSEC [Concomitant]
     Dosage: 20 MG, BID
     Route: 048
  13. METFORMIN HCL [Concomitant]
     Dosage: 500 MG, UNK
     Route: 048
  14. VITAMIN E                          /05494901/ [Concomitant]
     Dosage: 1000 UNIT, QD
     Route: 048
  15. MULTI-VITAMINS [Concomitant]
     Dosage: 1 DF, QD
     Route: 048
  16. ACETAMINOPHEN [Concomitant]
     Dosage: 650 MG, BID
     Route: 048
  17. VITAMIN A                          /00056002/ [Concomitant]
     Dosage: 10000 UNIT, QD
     Route: 048
  18. SUPER B COMPLEX                    /06442901/ [Concomitant]
     Dosage: 1 DF, QD
     Route: 048
  19. CALCIUM + VITAMIN D                /01483701/ [Concomitant]
     Dosage: 2 DF, QD
     Route: 048

REACTIONS (9)
  - SMALL INTESTINAL OBSTRUCTION [None]
  - FATIGUE [None]
  - ASTHENIA [None]
  - HEADACHE [None]
  - ABDOMINAL HERNIA OBSTRUCTIVE [None]
  - ILEUS [None]
  - ABDOMINAL PAIN [None]
  - EXTRANODAL MARGINAL ZONE B-CELL LYMPHOMA (MALT TYPE) [None]
  - THROMBOCYTOPENIA [None]
